FAERS Safety Report 10494404 (Version 2)
Quarter: 2015Q1

REPORT INFORMATION
  Report Type: Spontaneous
  Country: GB (occurrence: GB)
  Receive Date: 20141003
  Receipt Date: 20150313
  Transmission Date: 20150720
  Serious: Yes (Hospitalization)
  Sender: FDA-Public Use
  Company Number: PHFR2014GB006628

PATIENT
  Sex: Male

DRUGS (1)
  1. ZOMETA [Suspect]
     Active Substance: ZOLEDRONIC ACID
     Indication: PRODUCT USED FOR UNKNOWN INDICATION
     Dosage: 4 MG, QMO
     Route: 042

REACTIONS (10)
  - Dyspnoea [Unknown]
  - Feeling abnormal [Unknown]
  - Pollakiuria [Unknown]
  - Fall [Unknown]
  - Fatigue [Unknown]
  - Constipation [Unknown]
  - Poor quality sleep [Unknown]
  - Balance disorder [Unknown]
  - Pain [Unknown]
  - Pneumonia [Unknown]
